FAERS Safety Report 24051581 (Version 1)
Quarter: 2024Q3

REPORT INFORMATION
  Report Type: Spontaneous
  Country: FR (occurrence: None)
  Receive Date: 20240704
  Receipt Date: 20240704
  Transmission Date: 20241017
  Serious: Yes (Hospitalization)
  Sender: ASTRAZENECA
  Company Number: 2024A153390

PATIENT
  Age: 29 Year
  Sex: Male

DRUGS (4)
  1. QUETIAPINE [Suspect]
     Active Substance: QUETIAPINE
     Route: 048
     Dates: start: 20240615
  2. TERALITHE [Suspect]
     Active Substance: LITHIUM CARBONATE
     Dosage: 5 DOSAGE FORM, 5 TABLETS OF LITHIUM
     Route: 048
     Dates: start: 20240615
  3. ZOPICLONE [Suspect]
     Active Substance: ZOPICLONE
     Dosage: 5 DOSAGE FORM, 5 TABLETS OF ZOPICLONE
     Route: 048
     Dates: start: 20240615
  4. PAROXETINE HYDROCHLORIDE [Suspect]
     Active Substance: PAROXETINE HYDROCHLORIDE\PAROXETINE HYDROCHLORIDE ANHYDROUS
     Dosage: 5 DOSAGE FORM, 5 TABLETS OF PAROXETINE
     Route: 048
     Dates: start: 20240615

REACTIONS (4)
  - Poisoning deliberate [Recovered/Resolved]
  - Somnolence [Recovered/Resolved]
  - Tachycardia [Recovered/Resolved]
  - Feeling hot [Recovered/Resolved]

NARRATIVE: CASE EVENT DATE: 20240615
